FAERS Safety Report 8484342-9 (Version None)
Quarter: 2012Q3

REPORT INFORMATION
  Report Type: 
  Country: None (occurrence: None)
  Receive Date: 20120703
  Receipt Date: 20120626
  Transmission Date: 20120928
  Serious: Yes (Hospitalization)
  Sender: FDA-Public Use
  Company Number: PHHY2009JP25297

PATIENT
  Age: 77 Year
  Sex: Male

DRUGS (10)
  1. URSO 250 [Concomitant]
     Dosage: 600 MG, UNK
     Route: 048
  2. TASIGNA [Suspect]
     Dosage: 800 MG, DAILY
     Route: 048
     Dates: start: 20090814, end: 20090910
  3. LANSOPRAZOLE [Concomitant]
     Dosage: 15 MG, UNK
     Route: 048
  4. MENEST [Concomitant]
     Dosage: 300 MG, UNK
     Route: 048
  5. LASIX [Concomitant]
     Dosage: 20 MG, UNK
     Route: 048
  6. ALOSENN [Concomitant]
     Dosage: 0.5 G, UNK
     Route: 048
  7. MOTILIUM [Concomitant]
     Dosage: 30 MG, UNK
     Route: 048
  8. JUSO [Concomitant]
     Dosage: 1000 MG, UNK
     Route: 048
  9. TASIGNA [Suspect]
     Indication: CHRONIC MYELOID LEUKAEMIA
     Dosage: 800 MG, QD
     Route: 048
     Dates: start: 20090430, end: 20090521
  10. TASIGNA [Suspect]
     Dosage: 400 MG, QD
     Route: 048
     Dates: start: 20090522, end: 20090813

REACTIONS (8)
  - BLOOD CREATININE INCREASED [None]
  - HYPERURICAEMIA [None]
  - NAUSEA [None]
  - ELECTROCARDIOGRAM QT PROLONGED [None]
  - OEDEMA [None]
  - HEPATIC FUNCTION ABNORMAL [None]
  - RENAL FAILURE CHRONIC [None]
  - BLOOD UREA INCREASED [None]
